FAERS Safety Report 8263102-8 (Version None)
Quarter: 2012Q2

REPORT INFORMATION
  Report Type: 
  Country: None (occurrence: None)
  Receive Date: 20120405
  Receipt Date: 20120402
  Transmission Date: 20120825
  Serious: Yes (Other)
  Sender: FDA-Public Use
  Company Number: US-PFIZER INC-2011087470

PATIENT
  Sex: Female
  Weight: 58.05 kg

DRUGS (2)
  1. AMOXICILLIN AND CLAVULANATE POTASSIUM [Concomitant]
     Indication: SINUSITIS
     Dosage: UNK
  2. LYRICA [Suspect]
     Indication: FIBROMYALGIA
     Dosage: 100 MG, 4X/DAY
     Route: 048
     Dates: end: 20120330

REACTIONS (11)
  - INTERVERTEBRAL DISC DISORDER [None]
  - OSTEOPENIA [None]
  - BALANCE DISORDER [None]
  - BODY HEIGHT DECREASED [None]
  - PAIN IN EXTREMITY [None]
  - ARTHRITIS [None]
  - BACK DISORDER [None]
  - ARTHRALGIA [None]
  - SPINAL CORD DISORDER [None]
  - SPINAL FRACTURE [None]
  - GAIT DISTURBANCE [None]
